FAERS Safety Report 6596887-7 (Version None)
Quarter: 2010Q1

REPORT INFORMATION
  Report Type: 
  Country: None (occurrence: None)
  Receive Date: 20100223
  Receipt Date: 20100210
  Transmission Date: 20100710
  Serious: Yes (Life-Threatening, Hospitalization)
  Sender: FDA-Public Use
  Company Number: FR-CELGENEUS-056-20484-10020917

PATIENT
  Sex: Female
  Weight: 64 kg

DRUGS (4)
  1. INNOHEP [Suspect]
     Route: 058
  2. SUNITINIB MALATE [Suspect]
     Route: 065
     Dates: start: 20091228, end: 20100121
  3. ODRIK [Concomitant]
     Route: 048
     Dates: start: 20091228
  4. ACTOS [Concomitant]
     Indication: DRUG USE FOR UNKNOWN INDICATION
     Route: 048

REACTIONS (4)
  - DISSEMINATED INTRAVASCULAR COAGULATION [None]
  - HAEMORRHAGIC DISORDER [None]
  - RENAL FAILURE ACUTE [None]
  - SUBILEUS [None]
